FAERS Safety Report 8455165-1 (Version None)
Quarter: 2012Q2

REPORT INFORMATION
  Report Type: 
  Country: None (occurrence: None)
  Receive Date: 20120621
  Receipt Date: 20120615
  Transmission Date: 20120825
  Serious: Yes (Hospitalization)
  Sender: FDA-Public Use
  Company Number: US-TEVA-343667USA

PATIENT
  Age: 1 Year
  Sex: Female
  Weight: 9.6 kg

DRUGS (9)
  1. CYTARABINE [Suspect]
     Dates: start: 20120106, end: 20120601
  2. LEUCOVORIN CALCIUM [Suspect]
     Dates: start: 20120106, end: 20120510
  3. PEGASPARGASE [Suspect]
     Route: 030
     Dates: start: 20120106, end: 20120601
  4. LESTAURTINIB [Suspect]
     Indication: ACUTE LYMPHOCYTIC LEUKAEMIA
     Dates: start: 20120106, end: 20120613
  5. ETOPOSIDE [Suspect]
     Dates: start: 20120106, end: 20120519
  6. HYDROCORTISONE [Suspect]
     Route: 037
     Dates: start: 20120106, end: 20120426
  7. CYCLOPHOSPHAMIDE [Suspect]
     Dates: start: 20120106, end: 20120519
  8. METHOTREXATE [Suspect]
     Dates: start: 20120106, end: 20120508
  9. FILGRASTIM [Concomitant]
     Dates: start: 20120106

REACTIONS (2)
  - SOFT TISSUE INFECTION [None]
  - BACTERAEMIA [None]
